FAERS Safety Report 9726114 (Version 2)
Quarter: 2014Q1

REPORT INFORMATION
  Report Type: Report from Study
  Country: US (occurrence: US)
  Receive Date: 20131203
  Receipt Date: 20140214
  Transmission Date: 20141002
  Serious: Yes (Hospitalization, Other)
  Sender: FDA-Public Use
  Company Number: US-CELGENEUS-163-21880-13113883

PATIENT
  Age: 60 Year
  Sex: Male

DRUGS (16)
  1. REVLIMID [Suspect]
     Indication: PLASMA CELL MYELOMA
     Dosage: 5 MILLIGRAM
     Route: 048
     Dates: start: 20120920, end: 20130116
  2. NOVOLOG [Concomitant]
     Indication: DIABETES MELLITUS
     Dosage: SLIDING SCALE
     Route: 058
     Dates: start: 20090630
  3. NORCO [Concomitant]
     Indication: PAIN
     Dosage: 5 - 325MG
     Route: 048
     Dates: start: 20100917
  4. DEXAMETHASONE [Concomitant]
     Indication: PLASMA CELL MYELOMA
     Route: 048
     Dates: start: 20120921
  5. HYDROCORTISONE [Concomitant]
     Indication: PRURITUS
     Route: 054
     Dates: start: 20121205
  6. CATAPRES [Concomitant]
     Indication: HYPERTENSION
     Dosage: .4 MILLIGRAM
     Route: 048
     Dates: start: 20120919
  7. ASA [Concomitant]
     Indication: PROPHYLAXIS
     Dosage: 81 MILLIGRAM
     Route: 048
     Dates: start: 20100823
  8. RENVELA [Concomitant]
     Indication: HYPERPHOSPHATAEMIA
     Dosage: 2400 MILLIGRAM
     Route: 048
     Dates: start: 20110927
  9. TYLENOL [Concomitant]
     Indication: PAIN
     Dosage: 3900 MILLIGRAM
     Route: 048
     Dates: start: 20110923
  10. NITROSTAT [Concomitant]
     Indication: CHEST PAIN
     Dosage: 115.2 MILLIGRAM
     Route: 060
     Dates: start: 20110923
  11. VITAMIN B6 [Concomitant]
     Indication: VITAMIN SUPPLEMENTATION
     Dosage: 1 TABLET
     Route: 048
     Dates: start: 20110406
  12. VITAMIN B-12 [Concomitant]
     Indication: VITAMIN SUPPLEMENTATION
     Dosage: 1 TABLET
     Route: 048
     Dates: start: 20110406
  13. ACYCLOVIR [Concomitant]
     Indication: PROPHYLAXIS
     Dosage: 800 MILLIGRAM
     Route: 048
     Dates: start: 20111007
  14. LASIX [Concomitant]
     Indication: HYPERTENSION
     Dosage: 40 MILLIGRAM
     Route: 048
     Dates: start: 20110304
  15. LASIX [Concomitant]
     Indication: OEDEMA
  16. EPOETIN ALFA [Concomitant]
     Indication: ANAEMIA
     Dosage: 13,000 UNITS
     Route: 058
     Dates: start: 20111004

REACTIONS (3)
  - Wound infection [Not Recovered/Not Resolved]
  - Back pain [Not Recovered/Not Resolved]
  - Thrombocytopenia [Not Recovered/Not Resolved]
